FAERS Safety Report 4278857-7 (Version None)
Quarter: 2004Q1

REPORT INFORMATION
  Report Type: 
  Country: None (occurrence: None)
  Receive Date: 20040122
  Receipt Date: 20040122
  Transmission Date: 20041129
  Serious: Yes (Hospitalization)
  Sender: FDA-Public Use
  Company Number: None

PATIENT
  Age: 70 Year
  Sex: Female

DRUGS (5)
  1. AUGMENTIN '875' [Suspect]
     Indication: PNEUMONIA
     Dosage: 875 MG BID PO
     Route: 048
     Dates: start: 20031112, end: 20031113
  2. PLAVIX [Concomitant]
  3. COUMADIN [Concomitant]
  4. LASIX [Concomitant]
  5. AVAPRO [Concomitant]

REACTIONS (1)
  - LEUKOPENIA [None]
